FAERS Safety Report 15568559 (Version 2)
Quarter: 2018Q4

REPORT INFORMATION
  Report Type: Spontaneous
  Country: FR (occurrence: FR)
  Receive Date: 20181031
  Receipt Date: 20181101
  Transmission Date: 20190205
  Serious: Yes (Other)
  Sender: FDA-Public Use
  Company Number: FR-SUN PHARMACEUTICAL INDUSTRIES LTD-2018RR-189842

PATIENT
  Age: 16 Year
  Sex: Male

DRUGS (1)
  1. FLECAINIDE [Suspect]
     Active Substance: FLECAINIDE
     Indication: VENTRICULAR TACHYCARDIA
     Dosage: 2.8 MG/KG OR 150 MG/DAY
     Route: 065

REACTIONS (1)
  - Drug ineffective [Unknown]
